FAERS Safety Report 23488268 (Version 1)
Quarter: 2024Q1

REPORT INFORMATION
  Report Type: Spontaneous
  Country: DK (occurrence: DK)
  Receive Date: 20240206
  Receipt Date: 20240206
  Transmission Date: 20240409
  Serious: Yes (Death, Hospitalization)
  Sender: FDA-Public Use
  Company Number: None

PATIENT
  Age: 63 Year
  Sex: Male

DRUGS (5)
  1. CLINDAMYCIN [Suspect]
     Active Substance: CLINDAMYCIN
     Indication: Osteomyelitis
     Dosage: UNK, STOP DATE IN DEC2021 OR JAN2022
     Dates: start: 20211222
  2. CEFUROXIME [Suspect]
     Active Substance: CEFUROXIME
     Indication: Streptococcal infection
     Dosage: UNK
     Route: 042
     Dates: start: 20220210, end: 20220217
  3. CEFUROXIME [Suspect]
     Active Substance: CEFUROXIME
     Indication: Osteomyelitis
     Dosage: UNK
     Dates: start: 20220103, end: 20220113
  4. LINEZOLID [Suspect]
     Active Substance: LINEZOLID
     Indication: Streptococcal infection
     Dosage: 1200 MG, 1X/DAY, FOR 4 WEEKS
     Route: 048
     Dates: start: 20220114, end: 202202
  5. LINEZOLID [Suspect]
     Active Substance: LINEZOLID
     Indication: Osteomyelitis

REACTIONS (12)
  - Organ failure [Fatal]
  - Dysbiosis [Fatal]
  - Abdominal distension [Fatal]
  - Overflow diarrhoea [Fatal]
  - Acute kidney injury [Fatal]
  - Septic shock [Fatal]
  - Constipation [Fatal]
  - Abdominal pain [Fatal]
  - Clostridial sepsis [Fatal]
  - Feeling abnormal [Fatal]
  - Dehydration [Fatal]
  - Diarrhoea [Fatal]

NARRATIVE: CASE EVENT DATE: 20220112
